FAERS Safety Report 7606120-2 (Version None)
Quarter: 2011Q3

REPORT INFORMATION
  Report Type: 
  Country: None (occurrence: None)
  Receive Date: 20110705
  Receipt Date: 20110621
  Transmission Date: 20111222
  Serious: Yes (Other)
  Sender: FDA-Public Use
  Company Number: DSU-2011-03767

PATIENT
  Age: 70 Year
  Sex: Female
  Weight: 70.3075 kg

DRUGS (16)
  1. AZITHROMYCIN [Concomitant]
  2. VALIUM [Concomitant]
  3. BENADRYL [Concomitant]
  4. COLACE (DOCUSATE SODIUM) [Concomitant]
  5. HYDROXYZINE HCL [Concomitant]
  6. LASIX [Concomitant]
  7. SUDAFED 12 HOUR [Concomitant]
  8. POTASSIUM CHLORIDE [Concomitant]
  9. MINOCYCLINE HCL [Concomitant]
  10. OMEPRAZOLE [Concomitant]
  11. CALCIUM CARBONATE MAGNESIUM HYDROXIDE (CALCIUM CARBONATE, MAGNESIUM HY [Concomitant]
  12. TYLENOL PM (PARACETAMOL, DIPHENHYDRAMINE HYDROCHLORIDE) (PARACETAMOL, [Concomitant]
  13. BENICAR [Suspect]
     Indication: LYME DISEASE
     Dosage: 160 MG (40 MG, Q6H), PER ORAL; 160 MG (40 MG, Q6H), PER ORAL
     Route: 048
     Dates: start: 20110401, end: 20110601
  14. BENICAR [Suspect]
     Indication: LYME DISEASE
     Dosage: 160 MG (40 MG, Q6H), PER ORAL; 160 MG (40 MG, Q6H), PER ORAL
     Route: 048
     Dates: start: 20071101, end: 20110401
  15. BENICAR [Suspect]
     Indication: LYME DISEASE
     Dosage: 160 MG (40 MG, Q6H), PER ORAL; 160 MG (40 MG, Q6H), PER ORAL
     Route: 048
     Dates: start: 20110601
  16. ASPIRIN [Concomitant]

REACTIONS (7)
  - HYPERTENSION [None]
  - ANXIETY [None]
  - CONDITION AGGRAVATED [None]
  - VENTRICULAR EXTRASYSTOLES [None]
  - VERTIGO [None]
  - SUPRAVENTRICULAR TACHYCARDIA [None]
  - ALOPECIA [None]
